FAERS Safety Report 6096371-3 (Version None)
Quarter: 2009Q1

REPORT INFORMATION
  Report Type: 
  Country: None (occurrence: None)
  Receive Date: 20090227
  Receipt Date: 20081120
  Transmission Date: 20090719
  Serious: No
  Sender: FDA-Public Use
  Company Number: A0758225A

PATIENT
  Age: 30 Year
  Sex: Female
  Weight: 100 kg

DRUGS (3)
  1. LAMICTAL [Suspect]
     Indication: EPILEPSY
     Dosage: 400MG PER DAY
     Route: 048
     Dates: start: 20030601
  2. VITAMIN TAB [Concomitant]
     Route: 048
     Dates: start: 20040901
  3. FOLIC ACID [Concomitant]
     Dosage: 1MG THREE TIMES PER DAY
     Route: 048
     Dates: start: 20040901

REACTIONS (2)
  - DRUG EXPOSURE DURING PREGNANCY [None]
  - LIVE BIRTH [None]
